FAERS Safety Report 6906829-X (Version None)
Quarter: 2010Q3

REPORT INFORMATION
  Report Type: 
  Country: None (occurrence: None)
  Receive Date: 20100804
  Receipt Date: 20100727
  Transmission Date: 20110219
  Serious: Yes (Hospitalization, Other)
  Sender: FDA-Public Use
  Company Number: US-ELI_LILLY_AND_COMPANY-US201002003677

PATIENT
  Sex: Female
  Weight: 106.58 kg

DRUGS (12)
  1. BYETTA [Suspect]
     Dosage: UNK, UNKNOWN
     Route: 065
     Dates: start: 20061001, end: 20090201
  2. LIPITOR [Concomitant]
     Indication: BLOOD CHOLESTEROL INCREASED
     Dates: start: 20070830
  3. TORSEMIDE [Concomitant]
     Indication: OEDEMA
     Dates: start: 20050525
  4. SPIRONOLACTONE [Concomitant]
     Indication: OEDEMA
     Dates: start: 20050930
  5. WELLBUTRIN [Concomitant]
     Indication: DEPRESSION
     Dates: start: 20030509
  6. INTELENCE [Concomitant]
     Indication: HIV INFECTION
     Dates: start: 20080418
  7. ISENTRESS [Concomitant]
     Indication: HIV INFECTION
     Dates: start: 20071214
  8. TYLENOL                                 /SCH/ [Concomitant]
  9. METFORMIN HCL [Concomitant]
     Indication: DIABETES MELLITUS
     Dosage: UNK, UNK
     Dates: start: 20000101
  10. TRUVADA [Concomitant]
     Indication: HIV INFECTION
     Dates: start: 20061101
  11. NOVOLOG [Concomitant]
     Indication: DIABETES MELLITUS
     Dates: start: 20070529, end: 20090225
  12. LANTUS [Concomitant]
     Indication: DIABETES MELLITUS
     Dates: start: 20070529, end: 20100211

REACTIONS (3)
  - CHOLELITHIASIS [None]
  - OFF LABEL USE [None]
  - PANCREATITIS [None]
